FAERS Safety Report 5899685-2 (Version None)
Quarter: 2008Q3

REPORT INFORMATION
  Report Type: 
  Country: None (occurrence: None)
  Receive Date: 20080919
  Receipt Date: 20080617
  Transmission Date: 20090109
  Serious: No
  Sender: FDA-Public Use
  Company Number: US-WYE-H04253708

PATIENT
  Age: 62 Year
  Sex: Female
  Weight: 52.21 kg

DRUGS (2)
  1. PRISTIQ [Suspect]
     Indication: DEPRESSION
     Dosage: 50 MG 1X PER 1 DAY, ORAL
     Route: 048
     Dates: start: 20080522, end: 20080522
  2. ATENOLOL [Concomitant]

REACTIONS (3)
  - EXTRASYSTOLES [None]
  - IRRITABILITY [None]
  - RESTLESSNESS [None]
